FAERS Safety Report 5414348-5 (Version None)
Quarter: 2007Q3

REPORT INFORMATION
  Report Type: 
  Country: None (occurrence: None)
  Receive Date: 20070814
  Receipt Date: 20070731
  Transmission Date: 20080115
  Serious: Yes (Death, Hospitalization)
  Sender: FDA-Public Use
  Company Number: JP-SHR-JP-2006-013503

PATIENT
  Age: 73 Year
  Sex: Female

DRUGS (13)
  1. ASPHANATE [Concomitant]
     Dosage: 81 MG, 1X/DAY
     Route: 048
     Dates: start: 20051108, end: 20060122
  2. SLOW-K [Concomitant]
     Dosage: 800 MG, 2X/DAY
     Route: 048
     Dates: start: 20051016, end: 20060615
  3. TEGRETOL [Concomitant]
     Dosage: 200 MG, 3X/DAY
     Route: 048
     Dates: start: 20051018, end: 20060615
  4. ASPIRIN [Concomitant]
     Dosage: 100 MG, 1X/DAY
     Route: 048
     Dates: start: 20060113, end: 20060615
  5. NIFEKALANT [Concomitant]
     Indication: VENTRICULAR TACHYCARDIA
     Dosage: 15 MG, UNK
     Route: 042
     Dates: start: 20060306
  6. NIFEKALANT [Concomitant]
     Dates: start: 20060306
  7. NIFEKALANT [Concomitant]
     Route: 048
  8. NIFEKALANT [Concomitant]
     Dates: start: 20060306
  9. NIFEKALANT [Concomitant]
     Dates: start: 20060306
  10. NIFEKALANT [Concomitant]
  11. SOTALOL HCL [Suspect]
     Indication: VENTRICULAR TACHYCARDIA
     Dosage: 40 MG, 2X/DAY
     Route: 048
     Dates: start: 20051022, end: 20060601
  12. SOTALOL HCL [Suspect]
     Dosage: 80 MG, 2X/DAY
     Route: 048
     Dates: start: 20060602, end: 20060615
  13. TORSEMIDE [Concomitant]
     Dosage: 4 MG, 1X/DAY
     Route: 048
     Dates: start: 20060607, end: 20060615

REACTIONS (7)
  - CARDIAC FAILURE CONGESTIVE [None]
  - CARDIO-RESPIRATORY ARREST [None]
  - ELECTROCARDIOGRAM QT PROLONGED [None]
  - IMPLANTABLE DEFIBRILLATOR MALFUNCTION [None]
  - SUPRAVENTRICULAR EXTRASYSTOLES [None]
  - VENTRICULAR FIBRILLATION [None]
  - VENTRICULAR TACHYCARDIA [None]
